FAERS Safety Report 12386752 (Version 2)
Quarter: 2016Q2

REPORT INFORMATION
  Report Type: Report from Study
  Country: US (occurrence: US)
  Receive Date: 20160519
  Receipt Date: 20160606
  Transmission Date: 20160815
  Serious: Yes (Hospitalization)
  Sender: FDA-Public Use
  Company Number: US-ACTELION-A-NJ2016-131916

PATIENT
  Age: 48 Year
  Sex: Female
  Weight: 77.3 kg

DRUGS (4)
  1. CEFAZOLIN [Suspect]
     Active Substance: CEFAZOLIN
     Indication: DEVICE RELATED INFECTION
     Dosage: 2 G, EVERY 8 HOURS FOR 10 DAYS
     Route: 042
  2. LISINOPRIL. [Concomitant]
     Active Substance: LISINOPRIL
  3. VELETRI [Suspect]
     Active Substance: EPOPROSTENOL
     Indication: PULMONARY ARTERIAL HYPERTENSION
     Dosage: 12 NG/KG, PER MIN
     Route: 042
     Dates: start: 20160210
  4. CHLORHEXIDINE [Suspect]
     Active Substance: CHLORHEXIDINE
     Indication: PRODUCT USED FOR UNKNOWN INDICATION
     Route: 065

REACTIONS (27)
  - Device related infection [Unknown]
  - Abdominal pain [Unknown]
  - Nausea [Unknown]
  - Vomiting [Unknown]
  - Diarrhoea haemorrhagic [Unknown]
  - Pain in jaw [Unknown]
  - Catheter site infection [Unknown]
  - Fatigue [Recovering/Resolving]
  - Syncope [Unknown]
  - Skin warm [Unknown]
  - Pruritus generalised [Unknown]
  - Hypotension [Recovered/Resolved]
  - Catheter site mass [Unknown]
  - Skin disorder [Unknown]
  - Drug hypersensitivity [Unknown]
  - Night sweats [Unknown]
  - Catheter site erythema [Unknown]
  - Weight decreased [Unknown]
  - Rash generalised [Unknown]
  - Central venous catheterisation [Unknown]
  - Catheter site rash [Unknown]
  - Catheter site pain [Unknown]
  - Dyspnoea exertional [Unknown]
  - Diarrhoea [Unknown]
  - Hyperhidrosis [Unknown]
  - Rash pruritic [Recovered/Resolved]
  - Neck pain [Unknown]
